FAERS Safety Report 9507546 (Version 1)
Quarter: 2013Q1

REPORT INFORMATION
  Report Type: Spontaneous
  Country: US (occurrence: None)
  Receive Date: 20130305
  Receipt Date: 20130305
  Transmission Date: 20140127
  Serious: Yes (Other)
  Sender: FDA-Public Use
  Company Number: 163-21880-12032493

PATIENT
  Age: 59 Year
  Sex: Male

DRUGS (15)
  1. REVLIMID [Suspect]
     Indication: PLASMA CELL MYELOMA
     Route: 048
     Dates: start: 201008
  2. ALLEGRA [Concomitant]
  3. AMLODIPINE BESYLATE (AMLODIPINE BESILATE) [Concomitant]
  4. CHLORHEXIDINE GLUCONATE (CHLORHEXIDINE GLUCONATE) [Concomitant]
  5. DILANTIN (PHENYTOIN SODIUM) [Concomitant]
  6. LOVENOX (HEPARIN-FRACTION, SODIUM SALT) [Concomitant]
  7. ECOTRIN (ACEYTLSALICYLIC ACID) [Concomitant]
  8. FLONASE (FLUTICASONE PROPIONATE) [Concomitant]
  9. LEVAQUIN (LEVOFLOXACIN) [Concomitant]
  10. LISINOPRIL (LISINOPRIL) [Concomitant]
  11. MULTIPLE VITAMIN VITAMIN K FREE (MULTIPLE VITAMINS) [Concomitant]
  12. OLOPATADINE HCL (OLOPATADINE HYDROCHLORIDE) [Concomitant]
  13. PHENOBARBITAL (PHENOBARBITAL) [Concomitant]
  14. SILVADENE (SULFADIAZINE SILVER) [Concomitant]
  15. LOMOTIL (LOMOTIL) [Concomitant]

REACTIONS (4)
  - Diarrhoea [None]
  - White blood cell count decreased [None]
  - Neuropathy peripheral [None]
  - Haemoglobin decreased [None]
